FAERS Safety Report 22140140 (Version 1)
Quarter: 2023Q1

REPORT INFORMATION
  Report Type: Report from Study
  Country: US (occurrence: US)
  Receive Date: 20230327
  Receipt Date: 20230327
  Transmission Date: 20230418
  Serious: Yes (Hospitalization)
  Sender: FDA-Public Use
  Company Number: US-ABBVIE-4699870

PATIENT
  Age: 71 Year
  Sex: Male

DRUGS (9)
  1. IMBRUVICA [Suspect]
     Active Substance: IBRUTINIB
     Indication: Chronic lymphocytic leukaemia
     Route: 048
     Dates: start: 20230120
  2. Glucosamine-Chondroit-Collagen Oral [Concomitant]
     Indication: Product used for unknown indication
  3. Finasteride Oral Tablet 5 MG [Concomitant]
     Indication: Product used for unknown indication
  4. Vitamin D3 Ultra Potency Oral Table [Concomitant]
     Indication: Product used for unknown indication
  5. Allopurinol Oral Tablet 100 MG [Concomitant]
     Indication: Product used for unknown indication
  6. Ibuprofen Oral Capsule 200 MG [Concomitant]
     Indication: Product used for unknown indication
  7. RA Cetirizine Oral Tablet 10 MG [Concomitant]
     Indication: Product used for unknown indication
  8. Tamsulosin HCl Oral Capsule 0.4 MG [Concomitant]
     Indication: Product used for unknown indication
  9. Magnesium Oxide -Mg Supplement Oral 250 mg [Concomitant]
     Indication: Product used for unknown indication

REACTIONS (4)
  - Lower limb fracture [Unknown]
  - Prostatomegaly [Unknown]
  - Urinary retention [Unknown]
  - Catheter placement [Unknown]

NARRATIVE: CASE EVENT DATE: 20230318
